FAERS Safety Report 16904947 (Version 5)
Quarter: 2020Q1

REPORT INFORMATION
  Report Type: Spontaneous
  Country: JP (occurrence: JP)
  Receive Date: 20191010
  Receipt Date: 20200219
  Transmission Date: 20200409
  Serious: Yes (Hospitalization, Other)
  Sender: FDA-Public Use
  Company Number: JP-JNJFOC-20191007909

PATIENT
  Age: 85 Year
  Sex: Female
  Weight: 40 kg

DRUGS (9)
  1. AMLODIPINE [Concomitant]
     Active Substance: AMLODIPINE BESYLATE
     Indication: HYPERTENSION
     Route: 048
  2. VESICARE [Interacting]
     Active Substance: SOLIFENACIN SUCCINATE
     Route: 048
     Dates: start: 20191002
  3. FOLIAMIN [Concomitant]
     Active Substance: FOLIC ACID
     Route: 048
  4. REMINYL [Suspect]
     Active Substance: GALANTAMINE
     Indication: DEMENTIA ALZHEIMER^S TYPE
     Route: 048
  5. VESICARE [Interacting]
     Active Substance: SOLIFENACIN SUCCINATE
     Indication: HYPERTONIC BLADDER
     Dosage: UNKNOWN
     Route: 048
     Dates: end: 20190926
  6. VESICARE [Interacting]
     Active Substance: SOLIFENACIN SUCCINATE
     Dosage: UNKNOWN
     Route: 048
     Dates: start: 20190927, end: 20191001
  7. OMEPRAL                            /00661201/ [Concomitant]
     Active Substance: OMEPRAZOLE
     Indication: GASTROOESOPHAGEAL REFLUX DISEASE
     Route: 048
  8. BIOFERMIN                          /01617201/ [Concomitant]
     Active Substance: DIETARY SUPPLEMENT\PROBIOTICS
     Route: 048
  9. FERROMIA [Concomitant]
     Active Substance: SODIUM FERROUS CITRATE
     Indication: IRON DEFICIENCY ANAEMIA
     Route: 048

REACTIONS (10)
  - Decreased appetite [Unknown]
  - Renal impairment [Unknown]
  - Hyperhidrosis [Recovered/Resolved]
  - Pallor [Unknown]
  - Nausea [Recovering/Resolving]
  - Drug interaction [Unknown]
  - Anaemia [Unknown]
  - Blood pressure increased [Unknown]
  - Cold sweat [Recovering/Resolving]
  - Feeling abnormal [Recovering/Resolving]

NARRATIVE: CASE EVENT DATE: 20190929
